FAERS Safety Report 4847850-5 (Version None)
Quarter: 2005Q4

REPORT INFORMATION
  Report Type: 
  Country: None (occurrence: None)
  Receive Date: 20051207
  Receipt Date: 20051025
  Transmission Date: 20060501
  Serious: Yes (Hospitalization)
  Sender: FDA-Public Use
  Company Number: PHBS2005JP15797

PATIENT
  Age: 25 Year
  Sex: Male

DRUGS (3)
  1. NEORAL [Suspect]
     Indication: PSORIASIS
     Dosage: 25 MG X 175
     Route: 048
     Dates: start: 20051025, end: 20051025
  2. NEORAL [Suspect]
     Dosage: NOT SPECIFIED
     Dates: end: 20051001
  3. HYPNOTICS AND SEDATIVES [Suspect]

REACTIONS (6)
  - COMA [None]
  - INTENTIONAL DRUG MISUSE [None]
  - INTUBATION [None]
  - LOSS OF CONSCIOUSNESS [None]
  - PNEUMONIA ASPIRATION [None]
  - SUICIDE ATTEMPT [None]
